FAERS Safety Report 12130148 (Version 1)
Quarter: 2016Q1

REPORT INFORMATION
  Report Type: Spontaneous
  Country: US (occurrence: US)
  Receive Date: 20160229
  Receipt Date: 20160229
  Transmission Date: 20160526
  Serious: No
  Sender: FDA-Public Use
  Company Number: US-ACORDA-ACO_24553_2010

PATIENT
  Age: 59 Year
  Sex: Female
  Weight: 94 kg

DRUGS (8)
  1. GABAPENTIN. [Concomitant]
     Active Substance: GABAPENTIN
     Dosage: DF
  2. PANTOPRAZOLE [Concomitant]
     Active Substance: PANTOPRAZOLE SODIUM
     Dosage: DF
  3. INTERFERON INJECTION [Concomitant]
     Dosage: DF
  4. BACLOFEN. [Concomitant]
     Active Substance: BACLOFEN
     Dosage: DF
  5. KEPPRA [Concomitant]
     Active Substance: LEVETIRACETAM
     Dosage: DF
  6. AMPYRA [Suspect]
     Active Substance: DALFAMPRIDINE
     Indication: MULTIPLE SCLEROSIS
     Dosage: 10 MG, BID
     Route: 048
     Dates: start: 20100806
  7. AMPYRA [Suspect]
     Active Substance: DALFAMPRIDINE
     Indication: GAIT DISTURBANCE
  8. METHADONE INJECTION [Concomitant]
     Dosage: DF

REACTIONS (3)
  - Pruritus [Recovering/Resolving]
  - Back pain [Recovering/Resolving]
  - Sleep disorder due to a general medical condition [Recovering/Resolving]

NARRATIVE: CASE EVENT DATE: 20100810
